FAERS Safety Report 14244390 (Version 3)
Quarter: 2018Q3

REPORT INFORMATION
  Report Type: Spontaneous
  Country: JP (occurrence: JP)
  Receive Date: 20171201
  Receipt Date: 20180806
  Transmission Date: 20181010
  Serious: Yes (Other)
  Sender: FDA-Public Use
  Company Number: JP-BAUSCH-BL-2017-032654

PATIENT
  Age: 46 Year
  Sex: Female

DRUGS (2)
  1. RIBAVIRIN. [Suspect]
     Active Substance: RIBAVIRIN
     Indication: HEPATITIS B
     Route: 065
  2. SOFOSBUVIR [Suspect]
     Active Substance: SOFOSBUVIR
     Indication: HEPATITIS B
     Route: 065

REACTIONS (7)
  - Rash [Unknown]
  - Nausea [Unknown]
  - Pruritus [Unknown]
  - Cough [Unknown]
  - Hepatitis B reactivation [Recovering/Resolving]
  - Vomiting [Unknown]
  - Pyrexia [Unknown]
